FAERS Safety Report 4343428-0 (Version None)
Quarter: 2004Q2

REPORT INFORMATION
  Report Type: 
  Country: None (occurrence: None)
  Receive Date: 20040419
  Receipt Date: 20040405
  Transmission Date: 20050107
  Serious: Yes (Hospitalization, Other)
  Sender: FDA-Public Use
  Company Number: 2004022937

PATIENT
  Sex: Female
  Weight: 73.0291 kg

DRUGS (3)
  1. NEURONTIN [Suspect]
     Indication: NEURALGIA
     Dosage: 900 MG (THREE TIMES A DAY), ORAL
     Route: 048
     Dates: start: 20010201
  2. ENALAPRIL MALEATE [Suspect]
     Indication: ILL-DEFINED DISORDER
     Dates: end: 20031201
  3. ALL OTHER THERAPEUTIC PRODUCTS (ALL OTHER THERAPEUTIC PRODUCTS) [Concomitant]

REACTIONS (3)
  - BLOOD PRESSURE INADEQUATELY CONTROLLED [None]
  - NEURITIS [None]
  - SOMNOLENCE [None]
